FAERS Safety Report 25183248 (Version 1)
Quarter: 2025Q2

REPORT INFORMATION
  Report Type: Spontaneous
  Country: US (occurrence: None)
  Receive Date: 20250409
  Receipt Date: 20250409
  Transmission Date: 20250716
  Serious: Yes (Hospitalization)
  Sender: FDA-CTU
  Company Number: None

PATIENT
  Sex: Female
  Weight: 49.9 kg

DRUGS (7)
  1. TRELEGY ELLIPTA [Suspect]
     Active Substance: FLUTICASONE FUROATE\UMECLIDINIUM BROMIDE\VILANTEROL TRIFENATATE
     Dosage: 1 PU ONCE A DY MOUTH
     Route: 048
     Dates: start: 2024, end: 202503
  2. VITAMIN D3 [Concomitant]
     Active Substance: CHOLECALCIFEROL
  3. VITAMIN B12 [Concomitant]
     Active Substance: CYANOCOBALAMIN
  4. BEANO [Concomitant]
     Active Substance: ASPERGILLUS NIGER .ALPHA.-GALACTOSIDASE
  5. VALSARTAN [Concomitant]
     Active Substance: VALSARTAN
  6. SIMVASTATIN [Concomitant]
     Active Substance: SIMVASTATIN
  7. AMLODIPINE BESYLATE [Concomitant]
     Active Substance: AMLODIPINE BESYLATE

REACTIONS (6)
  - Dizziness [None]
  - Weight decreased [None]
  - Eye irritation [None]
  - Pollakiuria [None]
  - Back pain [None]
  - Abdominal discomfort [None]

NARRATIVE: CASE EVENT DATE: 20250101
